FAERS Safety Report 9348224 (Version 1)
Quarter: 2013Q2

REPORT INFORMATION
  Report Type: Spontaneous
  Country: US (occurrence: US)
  Receive Date: 20130614
  Receipt Date: 20130614
  Transmission Date: 20140414
  Serious: Yes (Hospitalization)
  Sender: FDA-Public Use
  Company Number: US-BAYER-2013-071398

PATIENT
  Age: 33 Year
  Sex: Female
  Weight: 52.29 kg

DRUGS (5)
  1. YAZ [Suspect]
  2. MOTRIN [Concomitant]
     Dosage: 800 MG EVERY 8 HOURS AS NEEDED
     Route: 048
  3. NORCO [Concomitant]
     Dosage: 10 MG EVERY 3-4 HOURS AS NEEDED
     Route: 048
  4. VIVELLE [ESTRADIOL] [Concomitant]
  5. DARVOCET [Concomitant]

REACTIONS (2)
  - Pulmonary embolism [None]
  - Deep vein thrombosis [None]
